FAERS Safety Report 8967846 (Version 2)
Quarter: 2012Q4

REPORT INFORMATION
  Report Type: 
  Country: AT (occurrence: AT)
  Receive Date: 20121218
  Receipt Date: 20121220
  Transmission Date: 20130627
  Serious: Yes (Hospitalization)
  Sender: FDA-Public Use
  Company Number: AT-GE HEALTHCARE MEDICAL DIAGNOSTICS-OMPQ-GE-1212S-1338

PATIENT
  Age: 60 Year
  Sex: Female

DRUGS (1)
  1. ACCUPAQUE [Suspect]
     Indication: BREAST NEOPLASM
     Route: 042
     Dates: start: 20121213, end: 20121213

REACTIONS (3)
  - Urticaria [Recovered/Resolved]
  - Bronchospasm [Recovered/Resolved]
  - Contrast media reaction [None]
